FAERS Safety Report 10151866 (Version 1)
Quarter: 2014Q2

REPORT INFORMATION
  Report Type: Report from Study
  Country: CA (occurrence: CA)
  Receive Date: 20140505
  Receipt Date: 20140505
  Transmission Date: 20141212
  Serious: Yes (Hospitalization)
  Sender: FDA-Public Use
  Company Number: CA-ROCHE-1392019

PATIENT
  Age: 17 Year
  Sex: Female

DRUGS (1)
  1. NUTROPIN AQ [Suspect]
     Indication: TURNER^S SYNDROME
     Dosage: 5 MG/ML
     Route: 058
     Dates: start: 201304

REACTIONS (1)
  - Sleep apnoea syndrome [Unknown]
